FAERS Safety Report 22248630 (Version 8)
Quarter: 2024Q1

REPORT INFORMATION
  Report Type: Spontaneous
  Country: US (occurrence: US)
  Receive Date: 20230425
  Receipt Date: 20240328
  Transmission Date: 20240410
  Serious: No
  Sender: FDA-Public Use
  Company Number: US-UNITED THERAPEUTICS-UNT-2023-010993

PATIENT
  Age: 35 Year
  Sex: Male
  Weight: 47.619 kg

DRUGS (17)
  1. REMODULIN [Suspect]
     Active Substance: TREPROSTINIL
     Indication: Pulmonary arterial hypertension
     Dosage: 0.200 ?G/KG, CONTINUING (PHARMACY FILLED WITH 3 ML PER CASSETTE AT THE PUMP RATE OF 56 MCL PER HOUR)
     Route: 058
     Dates: start: 202304
  2. REMODULIN [Suspect]
     Active Substance: TREPROSTINIL
     Dosage: UNK, CONTINUING
     Route: 058
     Dates: start: 202304
  3. REMODULIN [Suspect]
     Active Substance: TREPROSTINIL
     Indication: Pulmonary arterial hypertension
     Dosage: 0.200 ?G/KG (SELF FILL WITH 3ML PER CASSETTE; PUMP RATE 56 MCL/HOUR), CONTINUING
     Route: 058
     Dates: start: 202305
  4. REMODULIN [Suspect]
     Active Substance: TREPROSTINIL
     Dosage: UNK, CONTINUING
     Route: 058
     Dates: start: 20230519
  5. TADALAFIL [Concomitant]
     Active Substance: TADALAFIL
     Indication: Product used for unknown indication
     Dosage: UNK
     Route: 065
  6. LETAIRIS [Concomitant]
     Active Substance: AMBRISENTAN
     Indication: Product used for unknown indication
     Dosage: UNK
     Route: 065
  7. VELETRI [Concomitant]
     Active Substance: EPOPROSTENOL
     Indication: Product used for unknown indication
     Dosage: UNK
     Route: 065
  8. FAMOTIDINE [Concomitant]
     Active Substance: FAMOTIDINE
     Indication: Product used for unknown indication
     Dosage: UNK
     Route: 065
  9. POTASSIUM CHLORIDE [Concomitant]
     Active Substance: POTASSIUM CHLORIDE
     Indication: Product used for unknown indication
     Dosage: UNK
     Route: 065
  10. ESOMEPRAZOLE MAGNESIUM [Concomitant]
     Active Substance: ESOMEPRAZOLE MAGNESIUM
     Indication: Product used for unknown indication
     Dosage: UNK
     Route: 065
  11. LOPERAMIDE [Concomitant]
     Active Substance: LOPERAMIDE
     Indication: Product used for unknown indication
     Dosage: UNK
     Route: 065
  12. IRON [Concomitant]
     Active Substance: IRON
     Indication: Product used for unknown indication
     Dosage: UNK
     Route: 065
  13. VITAMINS [Concomitant]
     Active Substance: VITAMINS
     Indication: Product used for unknown indication
     Dosage: UNK
     Route: 065
  14. ACETAMINOPHEN [Concomitant]
     Active Substance: ACETAMINOPHEN
     Indication: Product used for unknown indication
     Dosage: UNK
     Route: 065
  15. ONDANSETRON HYDROCHLORIDE [Concomitant]
     Active Substance: ONDANSETRON HYDROCHLORIDE
     Indication: Product used for unknown indication
     Dosage: UNK
     Route: 065
  16. TRAMADOL HCL [Concomitant]
     Active Substance: TRAMADOL HYDROCHLORIDE
     Indication: Product used for unknown indication
     Route: 065
  17. CEPHALEXIN [Concomitant]
     Active Substance: CEPHALEXIN
     Indication: Product used for unknown indication
     Route: 065

REACTIONS (34)
  - Infusion site erythema [Unknown]
  - Infusion site pain [Unknown]
  - Infusion site warmth [Unknown]
  - Infusion site swelling [Unknown]
  - Myalgia [Not Recovered/Not Resolved]
  - Pain in extremity [Recovered/Resolved]
  - Vision blurred [Not Recovered/Not Resolved]
  - Flushing [Unknown]
  - Amnesia [Unknown]
  - Disturbance in attention [Unknown]
  - Dyspnoea exertional [Recovering/Resolving]
  - Headache [Unknown]
  - Therapy non-responder [Unknown]
  - Productive cough [Unknown]
  - Pyrexia [Unknown]
  - Dyspnoea [Unknown]
  - Diarrhoea [Recovered/Resolved]
  - Infusion site infection [Unknown]
  - Wrong device used [Recovered/Resolved]
  - Device connection issue [Recovered/Resolved]
  - Illness [Unknown]
  - Malaise [Unknown]
  - Device issue [Unknown]
  - Product packaging issue [Unknown]
  - Product packaging issue [Unknown]
  - Device maintenance issue [Unknown]
  - Device leakage [Unknown]
  - Device failure [Unknown]
  - Device failure [Recovered/Resolved]
  - Device failure [Recovered/Resolved]
  - Device leakage [Unknown]
  - Device failure [Unknown]
  - Device failure [Unknown]
  - Device failure [Unknown]

NARRATIVE: CASE EVENT DATE: 20230401
